FAERS Safety Report 5274375-8 (Version None)
Quarter: 2007Q1

REPORT INFORMATION
  Report Type: 
  Country: None (occurrence: None)
  Receive Date: 20070323
  Receipt Date: 20070312
  Transmission Date: 20070707
  Serious: Yes (Death)
  Sender: FDA-Public Use
  Company Number: US-PFIZER INC-2006149914

PATIENT
  Sex: Female
  Weight: 72.6 kg

DRUGS (9)
  1. BEXTRA [Suspect]
     Indication: ARTHRITIS
     Dates: start: 20031101, end: 20040301
  2. ADVIL [Concomitant]
  3. ASPIRIN [Concomitant]
  4. CELEBREX [Concomitant]
  5. DARVOCET [Concomitant]
  6. PERCOCET [Concomitant]
  7. TYLENOL [Concomitant]
  8. VIOXX [Concomitant]
  9. ULTRAM [Concomitant]

REACTIONS (1)
  - CEREBROVASCULAR ACCIDENT [None]
